FAERS Safety Report 24980344 (Version 2)
Quarter: 2025Q3

REPORT INFORMATION
  Report Type: Spontaneous
  Country: US (occurrence: None)
  Receive Date: 20250218
  Receipt Date: 20250816
  Transmission Date: 20251020
  Serious: No
  Sender: ALEXION PHARMACEUTICALS
  Company Number: US-AstraZeneca-2007UW20737

PATIENT
  Age: 62 Year
  Sex: Female
  Weight: 58.1 kg

DRUGS (15)
  1. NEXIUM [Suspect]
     Active Substance: ESOMEPRAZOLE MAGNESIUM
     Indication: Gastrooesophageal reflux disease
     Dosage: 40 MILLIGRAM, BID
     Dates: start: 200706, end: 200709
  2. NEXIUM [Suspect]
     Active Substance: ESOMEPRAZOLE MAGNESIUM
     Indication: Barrett^s oesophagus
  3. MIRALAX [Concomitant]
     Active Substance: POLYETHYLENE GLYCOL 3350
  4. SENOKOT [Concomitant]
     Active Substance: SENNOSIDES
     Indication: Irritable bowel syndrome
  5. FLECAINIDE ACETATE [Concomitant]
     Active Substance: FLECAINIDE ACETATE
  6. AMBIEN [Concomitant]
     Active Substance: ZOLPIDEM TARTRATE
  7. MEDROXYPROGESTERONE [Concomitant]
     Active Substance: MEDROXYPROGESTERONE
  8. LEXAPRO [Concomitant]
     Active Substance: ESCITALOPRAM OXALATE
  9. KLONOPIN [Concomitant]
     Active Substance: CLONAZEPAM
  10. OGEN [Concomitant]
     Active Substance: ESTROPIPATE
  11. GLUTAMINE [Concomitant]
     Active Substance: GLUTAMINE
  12. MINERALS\VITAMINS [Concomitant]
     Active Substance: MINERALS\VITAMINS
  13. VITAMIN B COMPLEX [Concomitant]
     Active Substance: CYANOCOBALAMIN\DEXPANTHENOL\NIACINAMIDE\PYRIDOXINE HYDROCHLORIDE\RIBOFLAVIN 5^-PHOSPHATE SODIUM\THIA
  14. ZINC [Concomitant]
     Active Substance: ZINC
  15. IRON [Concomitant]
     Active Substance: IRON

REACTIONS (4)
  - Heart rate increased [Unknown]
  - Decreased appetite [Unknown]
  - Paraesthesia [Unknown]
  - Tinnitus [Unknown]

NARRATIVE: CASE EVENT DATE: 20070101
